FAERS Safety Report 10210335 (Version 1)
Quarter: 2014Q2

REPORT INFORMATION
  Report Type: Spontaneous
  Country: US (occurrence: US)
  Receive Date: 20140602
  Receipt Date: 20140602
  Transmission Date: 20141212
  Serious: No
  Sender: FDA-Public Use
  Company Number: US-PFIZER INC-2014146358

PATIENT
  Sex: 0

DRUGS (1)
  1. ZALEPLON [Suspect]
     Dosage: UNK

REACTIONS (2)
  - Insomnia [Unknown]
  - Product substitution issue [Unknown]
